FAERS Safety Report 24089348 (Version 3)
Quarter: 2024Q3

REPORT INFORMATION
  Report Type: Spontaneous
  Country: US (occurrence: US)
  Receive Date: 20240715
  Receipt Date: 20240820
  Transmission Date: 20241016
  Serious: No
  Sender: LUPIN
  Company Number: US-LUPIN PHARMACEUTICALS INC.-2024-06414

PATIENT

DRUGS (2)
  1. TESTOSTERONE GEL 1.62% [Suspect]
     Active Substance: TESTOSTERONE
     Indication: Blood testosterone decreased
     Dosage: UNK, 3 PUMPS QD
     Route: 061
     Dates: start: 20240605
  2. TESTOSTERONE GEL 1.62% [Suspect]
     Active Substance: TESTOSTERONE
     Indication: Testis cancer

REACTIONS (4)
  - Drug dose omission by device [Unknown]
  - Drug delivery system malfunction [Unknown]
  - Product substitution issue [Unknown]
  - No adverse event [Unknown]
